FAERS Safety Report 5821770-1 (Version None)
Quarter: 2008Q3

REPORT INFORMATION
  Report Type: 
  Country: None (occurrence: None)
  Receive Date: 20080717
  Receipt Date: 20080708
  Transmission Date: 20090109
  Serious: Yes (Other)
  Sender: FDA-Public Use
  Company Number: 2008AP001680

PATIENT
  Age: 41 Year
  Sex: Female

DRUGS (2)
  1. DICLOFENAC SODIUM [Suspect]
  2. CELECOXIB [Concomitant]

REACTIONS (2)
  - COLITIS COLLAGENOUS [None]
  - DISEASE RECURRENCE [None]
